FAERS Safety Report 4532666-X (Version None)
Quarter: 2004Q4

REPORT INFORMATION
  Report Type: 
  Country: None (occurrence: None)
  Receive Date: 20041221
  Receipt Date: 20040226
  Transmission Date: 20050328
  Serious: Yes (Hospitalization, Other)
  Sender: FDA-Public Use
  Company Number: PHHO2004NZ02938

PATIENT
  Age: 63 Year
  Sex: Male
  Weight: 65 kg

DRUGS (14)
  1. PLACEBO OR VALSARTAN [Suspect]
     Indication: CARDIOVASCULAR DISORDER
     Dosage: LEVEL 1
     Route: 048
     Dates: start: 20031112
  2. PARACETAMOL [Concomitant]
  3. NEO-NACLEX [Concomitant]
  4. LOSEC [Concomitant]
  5. HYTRIN [Concomitant]
  6. FLUANXOL [Concomitant]
  7. LIPITOR [Concomitant]
  8. CARTIA XT [Concomitant]
  9. BLACKMORES HIGH-POTENCY B PLUS C [Concomitant]
  10. NATEGLINIDE VS PLACEBO [Suspect]
     Indication: GLUCOSE TOLERANCE IMPAIRED
     Dosage: LEVEL 1
     Route: 048
     Dates: start: 20031112
  11. SOMAC [Concomitant]
     Dosage: 40 MG, QD
  12. BENDROFLUAZIDE [Concomitant]
     Dosage: 2.5 MG, QD
  13. SELENIUM TRACE METAL ADDITIVE [Concomitant]
  14. CARBAMAZEPINE [Suspect]
     Indication: BIPOLAR DISORDER
     Dates: start: 20040926, end: 20040928

REACTIONS (13)
  - ABNORMAL BEHAVIOUR [None]
  - AFFECTIVE DISORDER [None]
  - AGGRESSION [None]
  - AGITATION [None]
  - BIPOLAR DISORDER [None]
  - DISEASE PROGRESSION [None]
  - FLUID RETENTION [None]
  - LOGORRHOEA [None]
  - MENTAL DISORDER [None]
  - MOOD SWINGS [None]
  - PARANOID PERSONALITY DISORDER [None]
  - PRESSURE OF SPEECH [None]
  - WEIGHT INCREASED [None]
